FAERS Safety Report 16473667 (Version 1)
Quarter: 2019Q2

REPORT INFORMATION
  Report Type: Spontaneous
  Country: US (occurrence: US)
  Receive Date: 20190625
  Receipt Date: 20190625
  Transmission Date: 20190711
  Serious: No
  Sender: FDA-Public Use
  Company Number: US-GLAXOSMITHKLINE-US2019112815

PATIENT
  Age: 50 Year
  Sex: Male

DRUGS (1)
  1. ABREVA [Suspect]
     Active Substance: DOCOSANOL
     Indication: ORAL HERPES
     Dosage: UNK (3-5 TIME)
     Dates: start: 20190612, end: 20190620

REACTIONS (6)
  - Application site discomfort [Unknown]
  - Accidental exposure to product [Unknown]
  - Inappropriate schedule of product administration [Unknown]
  - Application site pain [Unknown]
  - Malaise [Unknown]
  - Incorrect product administration duration [Unknown]
